FAERS Safety Report 15397457 (Version 2)
Quarter: 2018Q3

REPORT INFORMATION
  Report Type: Spontaneous
  Country: US (occurrence: US)
  Receive Date: 20180918
  Receipt Date: 20180929
  Transmission Date: 20181010
  Serious: Yes (Life-Threatening, Hospitalization)
  Sender: FDA-Public Use
  Company Number: US-TEVA-2018-US-954521

PATIENT
  Age: 6 Year
  Sex: Female

DRUGS (4)
  1. DAUNORUBICIN [Suspect]
     Active Substance: DAUNORUBICIN
     Indication: ACUTE MYELOID LEUKAEMIA
     Route: 065
     Dates: start: 201312, end: 201404
  2. ETOPOSIDE. [Concomitant]
     Active Substance: ETOPOSIDE
     Indication: ACUTE MYELOID LEUKAEMIA
     Route: 065
     Dates: start: 201312, end: 201404
  3. CYTARABINE. [Concomitant]
     Active Substance: CYTARABINE
     Indication: ACUTE MYELOID LEUKAEMIA
     Route: 065
     Dates: start: 201312, end: 201404
  4. MITOXANTRONE [Suspect]
     Active Substance: MITOXANTRONE HYDROCHLORIDE
     Indication: ACUTE MYELOID LEUKAEMIA
     Route: 065
     Dates: start: 201312, end: 201404

REACTIONS (8)
  - Respiratory failure [Recovered/Resolved]
  - Hepatic function abnormal [Recovered/Resolved]
  - Cardiac failure [Recovered/Resolved]
  - Ventricular dysfunction [Recovering/Resolving]
  - Cardiomyopathy [Recovered/Resolved]
  - Urine output decreased [Recovered/Resolved]
  - Hypoperfusion [Recovered/Resolved]
  - Cardiotoxicity [Unknown]
